FAERS Safety Report 7133344-3 (Version None)
Quarter: 2010Q4

REPORT INFORMATION
  Report Type: 
  Country: None (occurrence: None)
  Receive Date: 20101202
  Receipt Date: 20101119
  Transmission Date: 20110411
  Serious: Yes (Hospitalization)
  Sender: FDA-Public Use
  Company Number: US-WATSON-2010-15211

PATIENT
  Age: 46 Year
  Sex: Male
  Weight: 99.773 kg

DRUGS (3)
  1. PROPAFENONE HCL [Suspect]
     Indication: ATRIAL FIBRILLATION
     Dosage: 325 MG, BID
     Route: 048
     Dates: start: 20090101
  2. PROPAFENONE HCL [Suspect]
     Dosage: 425 MG, BID
     Route: 048
     Dates: start: 20090101
  3. ALCOHOL                            /00002101/ [Suspect]
     Indication: SOCIAL ALCOHOL DRINKER
     Dosage: 8 BEERS AND 2 MIXED DRINKS
     Route: 048

REACTIONS (5)
  - ALCOHOL INTERACTION [None]
  - DRUG TOXICITY [None]
  - ELECTROCARDIOGRAM QRS COMPLEX PROLONGED [None]
  - LEFT VENTRICULAR DYSFUNCTION [None]
  - SYNCOPE [None]
